FAERS Safety Report 23633334 (Version 1)
Quarter: 2024Q1

REPORT INFORMATION
  Report Type: Spontaneous
  Country: BR (occurrence: BR)
  Receive Date: 20240314
  Receipt Date: 20240314
  Transmission Date: 20240409
  Serious: Yes (Life-Threatening, Hospitalization, Other)
  Sender: FDA-Public Use
  Company Number: BR-BRACCO-2024BR00910

PATIENT
  Age: 39 Year
  Sex: Female

DRUGS (3)
  1. PROHANCE [Suspect]
     Active Substance: GADOTERIDOL
     Indication: Magnetic resonance imaging
     Dosage: 10 ML, SINGLE
     Route: 042
     Dates: start: 20240217, end: 20240217
  2. INDAPAMIDE [Concomitant]
     Active Substance: INDAPAMIDE
  3. IRON POLYMALTOSE [Concomitant]
     Active Substance: IRON POLYMALTOSE

REACTIONS (1)
  - Subarachnoid haemorrhage [Unknown]

NARRATIVE: CASE EVENT DATE: 20240217
